FAERS Safety Report 22284148 (Version 6)
Quarter: 2023Q2

REPORT INFORMATION
  Report Type: Spontaneous
  Country: CA (occurrence: CA)
  Receive Date: 20230504
  Receipt Date: 20230615
  Transmission Date: 20230722
  Serious: Yes (Hospitalization, Other)
  Sender: FDA-Public Use
  Company Number: CA-PFIZER INC-202300155890

PATIENT
  Age: 21 Year
  Sex: Male
  Weight: 102 kg

DRUGS (4)
  1. RUXIENCE [Suspect]
     Active Substance: RITUXIMAB-PVVR
     Indication: Anti-glomerular basement membrane disease
     Dosage: 825 MG, WEEKLY FOR 4 WEEKS
     Route: 042
     Dates: start: 20230407, end: 202304
  2. RUXIENCE [Suspect]
     Active Substance: RITUXIMAB-PVVR
     Dosage: UNK
     Dates: start: 20230421, end: 20230421
  3. RUXIENCE [Suspect]
     Active Substance: RITUXIMAB-PVVR
     Dosage: 825 MG, EVERY WEEK FOR 4 WEEKS, (WEEK 3)
     Route: 042
     Dates: start: 20230505, end: 20230505
  4. RUXIENCE [Suspect]
     Active Substance: RITUXIMAB-PVVR
     Dosage: 825 MG, EVERY WEEK FOR 4 WEEKS, (WEEK 3)
     Route: 042
     Dates: start: 20230505, end: 20230505

REACTIONS (4)
  - Pulmonary haemorrhage [Unknown]
  - Hypertension [Unknown]
  - Malaise [Unknown]
  - Off label use [Unknown]

NARRATIVE: CASE EVENT DATE: 20230401
